FAERS Safety Report 6909529-5 (Version None)
Quarter: 2010Q3

REPORT INFORMATION
  Report Type: 
  Country: None (occurrence: None)
  Receive Date: 20100805
  Receipt Date: 20100726
  Transmission Date: 20110219
  Serious: Yes (Hospitalization)
  Sender: FDA-Public Use
  Company Number: CA-GENENTECH-290020

PATIENT
  Sex: Female

DRUGS (4)
  1. RITUXAN [Suspect]
     Indication: RHEUMATOID ARTHRITIS
     Dosage: 1000 MG, UNK
     Route: 042
     Dates: start: 20090818, end: 20090831
  2. METHYLPREDNISOLONE [Concomitant]
     Indication: PREMEDICATION
     Dosage: 100 MG, Q2W
     Route: 042
     Dates: start: 20090818, end: 20090831
  3. ACETAMINOPHEN [Concomitant]
     Indication: PREMEDICATION
     Dosage: UNK
     Route: 048
     Dates: start: 20090818, end: 20090831
  4. ANTIHISTAMINE (UNK INGREDIENTS) [Concomitant]
     Indication: PREMEDICATION
     Dosage: UNK
     Route: 048
     Dates: start: 20090818, end: 20090831

REACTIONS (1)
  - MYOCARDIAL INFARCTION [None]
